FAERS Safety Report 17819402 (Version 3)
Quarter: 2021Q2

REPORT INFORMATION
  Report Type: Report from Study
  Country: BR (occurrence: BR)
  Receive Date: 20200523
  Receipt Date: 20210520
  Transmission Date: 20210716
  Serious: Yes (Death, Other)
  Sender: FDA-Public Use
  Company Number: NVSC2020BR140180

PATIENT
  Age: 53 Year
  Sex: Female

DRUGS (4)
  1. GILENYA [Suspect]
     Active Substance: FINGOLIMOD HYDROCHLORIDE
     Dosage: UNK
     Route: 065
     Dates: start: 20190910
  2. GILENYA [Suspect]
     Active Substance: FINGOLIMOD HYDROCHLORIDE
     Dosage: UNK
     Route: 065
     Dates: start: 20190918, end: 20200123
  3. GILENYA [Suspect]
     Active Substance: FINGOLIMOD HYDROCHLORIDE
     Indication: MULTIPLE SCLEROSIS
     Dosage: START DATE JUL 2019 OR AUG 2019
     Route: 065
  4. PACLITAXEL. [Suspect]
     Active Substance: PACLITAXEL
     Indication: NEOPLASM MALIGNANT
     Dosage: UNK (EVERY THURSDAY AT THE HOSPITAL / 12 SESSIONS)
     Route: 065
     Dates: start: 20200430

REACTIONS (8)
  - Breast cancer female [Fatal]
  - Poor venous access [Unknown]
  - Injection site extravasation [Unknown]
  - Pain in extremity [Unknown]
  - Pulmonary embolism [Fatal]
  - Lung disorder [Fatal]
  - Limb injury [Unknown]
  - Musculoskeletal stiffness [Unknown]

NARRATIVE: CASE EVENT DATE: 201909
